FAERS Safety Report 6093206-X (Version None)
Quarter: 2009Q1

REPORT INFORMATION
  Report Type: 
  Country: None (occurrence: None)
  Receive Date: 20090226
  Receipt Date: 20090224
  Transmission Date: 20090719
  Serious: Yes (Other)
  Sender: FDA-Public Use
  Company Number: US-BRISTOL-MYERS SQUIBB COMPANY-14519102

PATIENT
  Sex: Female

DRUGS (4)
  1. AVAPRO [Suspect]
     Route: 065
  2. DETROL LA [Suspect]
     Indication: HYPERTONIC BLADDER
     Dosage: MODIFIED RELEASE CAPSLE, SOFT
     Route: 065
  3. ATENOLOL [Concomitant]
     Indication: HYPERTENSION
  4. VERAPAMIL [Concomitant]
     Indication: HYPERTENSION

REACTIONS (2)
  - DRUG INEFFECTIVE [None]
  - HIP ARTHROPLASTY [None]
